FAERS Safety Report 5793826-3 (Version None)
Quarter: 2008Q2

REPORT INFORMATION
  Report Type: 
  Country: None (occurrence: None)
  Receive Date: 20080627
  Receipt Date: 20080618
  Transmission Date: 20081010
  Serious: Yes (Other)
  Sender: FDA-Public Use
  Company Number: CA-PFIZER INC-2008051732

PATIENT
  Age: 80 Year
  Sex: Female

DRUGS (2)
  1. NORVASC [Suspect]
     Dosage: DAILY DOSE:5MG-TEXT:5 MG-FREQ:ONCE DAILY
     Route: 048
  2. NORVASC [Suspect]
     Dosage: DAILY DOSE:7.5MG-TEXT:7.5 MG-FREQ:ONCE DAILY

REACTIONS (2)
  - DEPRESSION [None]
  - SUICIDAL IDEATION [None]
